FAERS Safety Report 18770250 (Version 2)
Quarter: 2021Q2

REPORT INFORMATION
  Report Type: Spontaneous
  Country: US (occurrence: US)
  Receive Date: 20210121
  Receipt Date: 20210421
  Transmission Date: 20210717
  Serious: No
  Sender: FDA-Public Use
  Company Number: US-ZOGENIX INTERNATIONAL LIMITED, A WHOLLY OWNED SUBSIDIARY OF ZOGENIX, INC.-2020ZX000144

PATIENT
  Age: 17 Year
  Sex: Female

DRUGS (6)
  1. DEPAKOTE [Concomitant]
     Active Substance: DIVALPROEX SODIUM
     Indication: SEIZURE
     Route: 048
  2. LEVOCARNITINE. [Concomitant]
     Active Substance: LEVOCARNITINE
     Indication: PRODUCT USED FOR UNKNOWN INDICATION
     Route: 065
  3. DIACOMIT [Concomitant]
     Active Substance: STIRIPENTOL
     Indication: SEIZURE
     Route: 065
  4. ONFI [Concomitant]
     Active Substance: CLOBAZAM
     Indication: SEIZURE
     Route: 065
  5. FINTEPLA [Suspect]
     Active Substance: FENFLURAMINE
     Route: 048
     Dates: start: 202011
  6. FINTEPLA [Suspect]
     Active Substance: FENFLURAMINE
     Indication: SEVERE MYOCLONIC EPILEPSY OF INFANCY
     Route: 048
     Dates: start: 20201110, end: 202011

REACTIONS (2)
  - Decreased appetite [Recovering/Resolving]
  - Somnolence [Recovering/Resolving]

NARRATIVE: CASE EVENT DATE: 202011
